FAERS Safety Report 7503444 (Version 2)
Quarter: 2013Q1

REPORT INFORMATION
  Report Type: Spontaneous
  Country: US (occurrence: US)
  Receive Date: 20100727
  Receipt Date: 20130103
  Transmission Date: 20140127
  Serious: No
  Sender: FDA-Public Use
  Company Number: US-ABBOTT-09P-163-0591305-00

PATIENT
  Age: 74 Year
  Sex: Female

DRUGS (3)
  1. SYNTHROID [Suspect]
     Indication: HYPOTHYROIDISM
     Dates: start: 200903, end: 20090512
  2. SYNTHROID [Suspect]
     Route: 048
     Dates: start: 20090513
  3. SYNTHROID [Suspect]
     Route: 048

REACTIONS (4)
  - Impaired driving ability [Not Recovered/Not Resolved]
  - Insomnia [Recovering/Resolving]
  - Insomnia [Not Recovered/Not Resolved]
  - Asthenia [Not Recovered/Not Resolved]
